FAERS Safety Report 16662405 (Version 2)
Quarter: 2019Q3

REPORT INFORMATION
  Report Type: Spontaneous
  Country: ZA (occurrence: ZA)
  Receive Date: 20190802
  Receipt Date: 20190916
  Transmission Date: 20191004
  Serious: Yes (Other)
  Sender: FDA-Public Use
  Company Number: ZA-SEPTODONT-201905407

PATIENT
  Sex: Female

DRUGS (1)
  1. SEPTANEST [Suspect]
     Active Substance: ARTICAINE HYDROCHLORIDE\EPINEPHRINE BITARTRATE
     Indication: DENTAL LOCAL ANAESTHESIA
     Dosage: UNKNOWN
     Route: 004
     Dates: start: 20190725

REACTIONS (3)
  - Mouth ulceration [Unknown]
  - Swelling face [Unknown]
  - Blister [Unknown]

NARRATIVE: CASE EVENT DATE: 20190725
